FAERS Safety Report 22229891 (Version 1)
Quarter: 2023Q2

REPORT INFORMATION
  Report Type: Spontaneous
  Country: US (occurrence: None)
  Receive Date: 20230419
  Receipt Date: 20230419
  Transmission Date: 20230721
  Serious: No
  Sender: FDA-Public Use
  Company Number: 2023A085384

PATIENT
  Sex: Male

DRUGS (1)
  1. KOSELUGO [Suspect]
     Active Substance: SELUMETINIB
     Route: 048

REACTIONS (2)
  - Tumour haemorrhage [Unknown]
  - Tumour inflammation [Unknown]
